FAERS Safety Report 10272850 (Version 2)
Quarter: 2014Q3

REPORT INFORMATION
  Report Type: Spontaneous
  Country: US (occurrence: None)
  Receive Date: 20140630
  Receipt Date: 20140714
  Transmission Date: 20150326
  Serious: Yes (Other)
  Sender: FDA-Public Use
  Company Number: 2014VER00057

PATIENT
  Age: 15 Year
  Sex: Male

DRUGS (1)
  1. MYORISAN [Suspect]
     Active Substance: ISOTRETINOIN
     Indication: ACNE

REACTIONS (6)
  - Depression [None]
  - Photosensitivity reaction [None]
  - Seborrhoeic dermatitis [None]
  - Dry skin [None]
  - Melanocytic naevus [None]
  - Skin maceration [None]

NARRATIVE: CASE EVENT DATE: 20140614
